FAERS Safety Report 6640635-9 (Version None)
Quarter: 2010Q1

REPORT INFORMATION
  Report Type: 
  Country: None (occurrence: None)
  Receive Date: 20100318
  Receipt Date: 20100305
  Transmission Date: 20100710
  Serious: Yes (Hospitalization)
  Sender: FDA-Public Use
  Company Number: US-ELI_LILLY_AND_COMPANY-US200904007295

PATIENT
  Sex: Female
  Weight: 106.58 kg

DRUGS (11)
  1. BYETTA [Suspect]
     Dosage: 5 UG, 2/D
     Route: 058
     Dates: start: 20060501, end: 20081201
  2. METFORMIN HYDROCHLORIDE [Concomitant]
     Indication: DIABETES MELLITUS
     Dates: start: 20010101
  3. LANTUS [Concomitant]
     Dosage: 30 U, EACH EVENING
  4. LEVAQUIN [Concomitant]
     Dosage: 500 MG, EACH MORNING
  5. VICODIN [Concomitant]
     Dosage: UNK, OTHER
  6. LOPRESSOR [Concomitant]
     Dosage: 50 MG/KG, 2/D
     Route: 048
  7. NITROGLYCERIN [Concomitant]
     Route: 060
  8. ASPIRIN [Concomitant]
     Dosage: 81 MG, DAILY (1/D)
  9. MOTRIN [Concomitant]
  10. METOPROLOL TARTRATE [Concomitant]
  11. DIFLUCAN [Concomitant]

REACTIONS (2)
  - OFF LABEL USE [None]
  - PANCREATITIS ACUTE [None]
